FAERS Safety Report 6255534-4 (Version None)
Quarter: 2009Q2

REPORT INFORMATION
  Report Type: 
  Country: None (occurrence: None)
  Receive Date: 20090630
  Receipt Date: 20090622
  Transmission Date: 20091009
  Serious: Yes (Life-Threatening)
  Sender: FDA-Public Use
  Company Number: 2009JP003854

PATIENT
  Age: 61 Year
  Sex: Male

DRUGS (1)
  1. FUNGUARD(MICAFUNGIN) INJECTION [Suspect]
     Dosage: IV DRIP
     Route: 041

REACTIONS (3)
  - ASPHYXIA [None]
  - CHOKING [None]
  - MULTI-ORGAN FAILURE [None]
